FAERS Safety Report 10658201 (Version 1)
Quarter: 2014Q4

REPORT INFORMATION
  Report Type: Spontaneous
  Country: US (occurrence: None)
  Receive Date: 20141205
  Receipt Date: 20141205
  Transmission Date: 20150529
  Serious: Yes (Disabling)
  Sender: FDA-Public Use
  Company Number: 163-POMAL-14093357

PATIENT
  Age: 67 Year
  Sex: Female

DRUGS (15)
  1. CUCRUMIN (CURCUMIN) [Concomitant]
  2. VYTORIN (SIMVASTATIN, EZETIMIBE) [Concomitant]
  3. FUROSEMIDE. [Concomitant]
     Active Substance: FUROSEMIDE
  4. POMALYST [Suspect]
     Active Substance: POMALIDOMIDE
     Indication: PLASMA CELL MYELOMA
     Dosage: 4 MG, 21 IN 21 D, PO
     Route: 048
     Dates: start: 20140113
  5. ECOTRIN(ACETYSALICYLIC ACID) [Concomitant]
  6. KRILL OIL(FISH OIL) [Concomitant]
  7. VALACYCLOVIR(VALACICLOVIR HYDROCHLORIDE) [Concomitant]
  8. VELCADE(BORTEZOMIB) (INJECTION) [Concomitant]
     Active Substance: BORTEZOMIB
  9. DECADRON(DEXAMETHASONE) [Concomitant]
  10. ALPHA LIPOIC ACID (THIOCTIC ACID) [Concomitant]
  11. ZOLPIDEM TARTRATE(ZOLPIDEM TARTRATE) [Concomitant]
  12. HYDROXYZINE HCL(HYDROXYZINE HYDROCHLORIDE) [Concomitant]
  13. METOPROLOL SUCCINATE(METOPROLOL SUCCINATE) [Concomitant]
  14. IBUPROFEN. [Concomitant]
     Active Substance: IBUPROFEN
  15. DEXAMETHASONE. [Concomitant]
     Active Substance: DEXAMETHASONE

REACTIONS (1)
  - Rash pruritic [None]

NARRATIVE: CASE EVENT DATE: 201407
